FAERS Safety Report 23773671 (Version 1)
Quarter: 2024Q2

REPORT INFORMATION
  Report Type: Spontaneous
  Country: US (occurrence: US)
  Receive Date: 20240423
  Receipt Date: 20240423
  Transmission Date: 20240715
  Serious: Yes (Disabling)
  Sender: FDA-Public Use
  Company Number: US-SA-SAC20240422001104

PATIENT
  Age: 63 Year
  Sex: Female
  Weight: 64 kg

DRUGS (1)
  1. DUPIXENT [Suspect]
     Active Substance: DUPILUMAB
     Indication: Asthma
     Dosage: 300 MG, QOW
     Route: 058
     Dates: start: 202310

REACTIONS (8)
  - Loss of personal independence in daily activities [Recovering/Resolving]
  - Arthritis [Unknown]
  - Musculoskeletal stiffness [Unknown]
  - Swelling [Unknown]
  - Nasal congestion [Recovering/Resolving]
  - Cough [Not Recovered/Not Resolved]
  - Sleep disorder due to a general medical condition [Not Recovered/Not Resolved]
  - Chest discomfort [Not Recovered/Not Resolved]
